FAERS Safety Report 16740480 (Version 6)
Quarter: 2019Q4

REPORT INFORMATION
  Report Type: Spontaneous
  Country: US (occurrence: US)
  Receive Date: 20190826
  Receipt Date: 20191018
  Transmission Date: 20200122
  Serious: No
  Sender: FDA-Public Use
  Company Number: US-PFIZER INC-2019351624

PATIENT
  Age: 53 Year
  Sex: Female
  Weight: 121 kg

DRUGS (16)
  1. FUROSEMIDE. [Concomitant]
     Active Substance: FUROSEMIDE
     Dosage: 20 MG, UNK
  2. LEVOTHYROXINE. [Concomitant]
     Active Substance: LEVOTHYROXINE
     Dosage: 50 UG, UNK
  3. LYRICA [Suspect]
     Active Substance: PREGABALIN
     Indication: HYPOAESTHESIA
  4. TRAZODONE [Concomitant]
     Active Substance: TRAZODONE HYDROCHLORIDE
     Indication: ANXIETY
     Dosage: 50 MG, 1X/DAY
     Dates: start: 2016
  5. SINGULAIR [Concomitant]
     Active Substance: MONTELUKAST SODIUM
     Indication: HYPERSENSITIVITY
     Dosage: 10 MG, 1X/DAY
     Dates: start: 2017
  6. FLUTICASONE. [Concomitant]
     Active Substance: FLUTICASONE
     Indication: HYPERSENSITIVITY
     Dosage: 50 UG, 1X/DAY
     Dates: start: 2017
  7. VITAMIN C [Concomitant]
     Active Substance: ASCORBIC ACID
     Dosage: 100 MG, UNK
     Dates: start: 2015
  8. TRAZODONE [Concomitant]
     Active Substance: TRAZODONE HYDROCHLORIDE
     Indication: INSOMNIA
  9. MIRALAX [Concomitant]
     Active Substance: POLYETHYLENE GLYCOL 3350
     Dosage: 17 G, UNK
     Dates: start: 2018
  10. ALBUTEROL [SALBUTAMOL SULFATE] [Concomitant]
     Active Substance: ALBUTEROL SULFATE
     Dosage: 90 UG, UNK
     Dates: start: 2011
  11. LYRICA [Suspect]
     Active Substance: PREGABALIN
     Indication: NEUROPATHY PERIPHERAL
     Dosage: 300 MG, 2X/DAY
     Dates: start: 201805
  12. ASPIRIN 81 [Concomitant]
     Active Substance: ASPIRIN
     Dosage: 81 MG, UNK
  13. GALCANEZUMAB GNLM [Concomitant]
     Dosage: UNK
     Dates: start: 2019
  14. ZYPREXA [Concomitant]
     Active Substance: OLANZAPINE
     Dosage: 5 MG, UNK
     Dates: start: 2019
  15. PRILOSEC [Concomitant]
     Active Substance: OMEPRAZOLE MAGNESIUM
     Dosage: 20 MG, UNK
     Dates: start: 2016
  16. VITAMIN D3 [Concomitant]
     Active Substance: CHOLECALCIFEROL
     Dosage: 1000 IU, UNK
     Dates: start: 2015

REACTIONS (4)
  - Gait inability [Recovered/Resolved]
  - Pain [Not Recovered/Not Resolved]
  - Insomnia [Not Recovered/Not Resolved]
  - Feeling abnormal [Not Recovered/Not Resolved]

NARRATIVE: CASE EVENT DATE: 201905
